FAERS Safety Report 8999336 (Version 5)
Quarter: 2013Q4

REPORT INFORMATION
  Report Type: Spontaneous
  Country: US (occurrence: US)
  Receive Date: 20130103
  Receipt Date: 20131122
  Transmission Date: 20140711
  Serious: No
  Sender: FDA-Public Use
  Company Number: US-009507513-1212USA011001

PATIENT
  Age: 57 Year
  Sex: Male
  Weight: 86.17 kg

DRUGS (13)
  1. PEGINTRON [Suspect]
     Dosage: 150 MCG/0.5ML (4 SYRINGES PER PACK), QW
     Route: 058
     Dates: end: 201212
  2. PEGINTRON [Suspect]
     Dosage: 150 MCG/0.5ML, QW
     Route: 058
     Dates: start: 20121227, end: 2013
  3. RIBAVIRIN [Suspect]
     Dosage: UNK
     Route: 048
     Dates: end: 2013
  4. VICTRELIS [Suspect]
     Dosage: UNK
     Dates: end: 2013
  5. TELAPREVIR [Suspect]
     Dosage: UNK
     Route: 048
     Dates: start: 201211
  6. RIBAPAK [Suspect]
     Dosage: UNK
     Dates: end: 2013
  7. IMITREX (SUMATRIPTAN) [Concomitant]
  8. VIAGRA [Concomitant]
  9. VITAMINS (UNSPECIFIED) [Concomitant]
  10. OMEGA-3 MARINE TRIGLYCERIDES [Concomitant]
  11. GLUCOSAMINE [Concomitant]
  12. VITAMIN D (UNSPECIFIED) [Concomitant]
  13. TURMERIC [Concomitant]

REACTIONS (9)
  - Feeling hot [Recovered/Resolved]
  - Eye irritation [Recovered/Resolved]
  - Migraine [Unknown]
  - Urticaria [Recovered/Resolved]
  - Rash generalised [Recovered/Resolved]
  - Hypersensitivity [Recovered/Resolved]
  - Memory impairment [Unknown]
  - Influenza like illness [Unknown]
  - Pain [Unknown]
